FAERS Safety Report 9186031 (Version 1)
Quarter: 2013Q1

REPORT INFORMATION
  Report Type: Spontaneous
  Country: US (occurrence: None)
  Receive Date: 20130122
  Receipt Date: 20130122
  Transmission Date: 20140127
  Serious: Yes (Other)
  Sender: FDA-Public Use
  Company Number: 2013-00022

PATIENT
  Age: 42 Year
  Sex: 0
  Weight: 90.72 kg

DRUGS (1)
  1. ZICAM ULTRA COLD REMEDY LOZENGES [Suspect]
     Dosage: 1 LOZENGE
     Dates: start: 20130109

REACTIONS (2)
  - Heart rate increased [None]
  - Dyspnoea [None]
